FAERS Safety Report 18255318 (Version 1)
Quarter: 2020Q3

REPORT INFORMATION
  Report Type: Spontaneous
  Country: FR (occurrence: FR)
  Receive Date: 20200910
  Receipt Date: 20200910
  Transmission Date: 20201103
  Serious: Yes (Hospitalization)
  Sender: FDA-Public Use
  Company Number: FR-PURDUE-USA-2020-0165734

PATIENT
  Age: 64 Year
  Sex: Female
  Weight: 54 kg

DRUGS (10)
  1. OXYNORMORO [Suspect]
     Active Substance: OXYCODONE HYDROCHLORIDE
     Indication: PAIN
     Dosage: 2 DF, DAILY [STRENGTH 5 MG]
     Route: 048
     Dates: start: 20200704, end: 20200706
  2. BACTRIM [Suspect]
     Active Substance: SULFAMETHOXAZOLE\TRIMETHOPRIM
     Indication: ABSCESS
     Dosage: 2 DF, DAILY
     Route: 048
     Dates: start: 20200430, end: 20200704
  3. PARACETAMOL [Concomitant]
     Active Substance: ACETAMINOPHEN
     Dosage: UNK
  4. CLINDAMYCINE                       /00166002/ [Suspect]
     Active Substance: CLINDAMYCIN HYDROCHLORIDE
     Indication: ABSCESS
     Dosage: 6 DF, DAILY [STRENGTH 300 MG]
     Route: 048
     Dates: start: 20200617, end: 20200707
  5. KARDEGIC [Concomitant]
     Active Substance: ASPIRIN DL-LYSINE
  6. LOVENOX [Concomitant]
     Active Substance: ENOXAPARIN SODIUM
     Dosage: UNK
  7. SERESTA [Concomitant]
     Active Substance: OXAZEPAM
     Dosage: UNK
  8. PANTOPRAZOLE [Concomitant]
     Active Substance: PANTOPRAZOLE
     Dosage: UNK
  9. RIFADINE                           /00146901/ [Suspect]
     Active Substance: RIFAMPIN
     Indication: ABSCESS
     Dosage: 4 DF, DAILY [STRENGTH 300]
     Route: 048
     Dates: start: 20200617, end: 20200706
  10. ACTISKENAN [Suspect]
     Active Substance: MORPHINE SULFATE
     Indication: PAIN
     Dosage: 1 DF, UNK [STRENGTH 10MG]
     Route: 048
     Dates: start: 20200704, end: 20200704

REACTIONS (2)
  - Angioedema [Recovered/Resolved]
  - Rash maculo-papular [Recovered/Resolved]

NARRATIVE: CASE EVENT DATE: 20200704
